FAERS Safety Report 9265566 (Version 3)
Quarter: 2014Q3

REPORT INFORMATION
  Report Type: Spontaneous
  Country: US (occurrence: US)
  Receive Date: 20130501
  Receipt Date: 20140722
  Transmission Date: 20150326
  Serious: Yes (Hospitalization, Disabling, Other)
  Sender: FDA-Public Use
  Company Number: US-009507513-2012SP017144

PATIENT
  Sex: Female
  Weight: 87.75 kg

DRUGS (2)
  1. NUVARING [Suspect]
     Active Substance: ETHINYL ESTRADIOL\ETONOGESTREL
     Indication: CONTRACEPTION
     Dosage: LEAVE IN PLACE FOR 3 WKS,REMOVE FOR 1 WEEK
     Route: 067
     Dates: start: 2001, end: 2011
  2. HERBS (UNSPECIFIED) [Concomitant]
     Indication: PRODUCT USED FOR UNKNOWN INDICATION
     Dosage: UNK UNK, QD
     Route: 048

REACTIONS (19)
  - Dyspnoea [Unknown]
  - Chest pain [Unknown]
  - Muscle strain [Unknown]
  - Palpitations [Unknown]
  - Mania [Not Recovered/Not Resolved]
  - Hypertension [Unknown]
  - Schizoaffective disorder bipolar type [Not Recovered/Not Resolved]
  - Diastolic hypertension [Unknown]
  - Appendicectomy [Unknown]
  - Pulmonary embolism [Unknown]
  - Treatment noncompliance [Unknown]
  - Soft tissue injury [Unknown]
  - Syncope [Unknown]
  - Thrombosis [Unknown]
  - Condition aggravated [Unknown]
  - Exposure during pregnancy [Recovered/Resolved]
  - Psychotic disorder [Not Recovered/Not Resolved]
  - Drug abuse [Unknown]
  - Ligament sprain [Unknown]

NARRATIVE: CASE EVENT DATE: 2003
